FAERS Safety Report 25110947 (Version 1)
Quarter: 2025Q1

REPORT INFORMATION
  Report Type: Spontaneous
  Country: US (occurrence: US)
  Receive Date: 20250324
  Receipt Date: 20250324
  Transmission Date: 20250409
  Serious: No
  Sender: AMGEN
  Company Number: US-AMGEN-USASP2025054646

PATIENT
  Sex: Female

DRUGS (2)
  1. ENBREL [Suspect]
     Active Substance: ETANERCEPT
     Indication: Product used for unknown indication
     Route: 065
  2. TEZSPIRE [Concomitant]
     Active Substance: TEZEPELUMAB-EKKO
     Indication: Asthma
     Dosage: 210 MILLIGRAM, Q4WK

REACTIONS (1)
  - Drug hypersensitivity [Unknown]
